FAERS Safety Report 9458792 (Version 1)
Quarter: 2013Q3

REPORT INFORMATION
  Report Type: Spontaneous
  Country: US (occurrence: US)
  Receive Date: 20130814
  Receipt Date: 20130814
  Transmission Date: 20140515
  Serious: Yes (Hospitalization, Congenital Anomaly)
  Sender: FDA-Public Use
  Company Number: US-GLAXOSMITHKLINE-A0682198A

PATIENT
  Age: 0 Day
  Sex: Male

DRUGS (1)
  1. PAXIL [Suspect]
     Indication: DEPRESSION
     Dosage: 20MG PER DAY
     Route: 064
     Dates: start: 20030811, end: 200309

REACTIONS (6)
  - Ventricular septal defect [Unknown]
  - Pulmonary arterial hypertension [Unknown]
  - Atrial septal defect [Unknown]
  - Pulmonary artery stenosis congenital [Unknown]
  - Cardiac failure congestive [Unknown]
  - Foetal exposure during pregnancy [Unknown]
